FAERS Safety Report 12133747 (Version 2)
Quarter: 2016Q1

REPORT INFORMATION
  Report Type: Report from Study
  Country: CA (occurrence: CA)
  Receive Date: 20160301
  Receipt Date: 20160316
  Transmission Date: 20160526
  Serious: Yes (Life-Threatening, Hospitalization)
  Sender: FDA-Public Use
  Company Number: CA-ROCHE-1600650

PATIENT
  Age: 74 Year
  Sex: Male
  Weight: 73.9 kg

DRUGS (11)
  1. ESBRIET [Suspect]
     Active Substance: PIRFENIDONE
     Indication: IDIOPATHIC PULMONARY FIBROSIS
     Route: 048
     Dates: start: 20150223
  2. VITAMIN B12 [Concomitant]
     Active Substance: CYANOCOBALAMIN
  3. PANTOLOC [Concomitant]
     Active Substance: PANTOPRAZOLE SODIUM
  4. ESBRIET [Suspect]
     Active Substance: PIRFENIDONE
     Route: 048
     Dates: start: 201503
  5. EZETIMIBE. [Concomitant]
     Active Substance: EZETIMIBE
  6. PRAVASTATIN [Concomitant]
     Active Substance: PRAVASTATIN\PRAVASTATIN SODIUM
  7. ACETYLCYSTEINE. [Concomitant]
     Active Substance: ACETYLCYSTEINE
  8. ACETYLSALICYLIC ACID [Concomitant]
     Active Substance: ASPIRIN
  9. BISOPROLOL [Concomitant]
     Active Substance: BISOPROLOL
  10. LODALIS [Concomitant]
     Active Substance: COLESEVELAM HYDROCHLORIDE
  11. ESBRIET [Suspect]
     Active Substance: PIRFENIDONE
     Route: 048

REACTIONS (9)
  - Transient ischaemic attack [Unknown]
  - Decreased appetite [Unknown]
  - Vertebrobasilar insufficiency [Unknown]
  - Exercise tolerance decreased [Unknown]
  - Weight decreased [Unknown]
  - Respiratory gas exchange disorder [Unknown]
  - Sinusitis [Not Recovered/Not Resolved]
  - Dyspnoea [Unknown]
  - Sinus headache [Unknown]

NARRATIVE: CASE EVENT DATE: 201506
